FAERS Safety Report 4945327-X (Version None)
Quarter: 2006Q1

REPORT INFORMATION
  Report Type: 
  Country: None (occurrence: None)
  Receive Date: 20060315
  Receipt Date: 20060315
  Transmission Date: 20060701
  Serious: Yes (Life-Threatening, Other)
  Sender: FDA-Public Use
  Company Number: None

PATIENT
  Age: 73 Year
  Sex: Male
  Weight: 113.3993 kg

DRUGS (1)
  1. COMPD W WART REMOVAL SYSTEM CRYOGEN FOR WARTS [Suspect]
     Indication: SKIN PAPILLOMA
     Route: 061
     Dates: start: 20060201

REACTIONS (2)
  - IMPAIRED HEALING [None]
  - MALIGNANT MELANOMA [None]
